FAERS Safety Report 24183103 (Version 4)
Quarter: 2024Q3

REPORT INFORMATION
  Report Type: Spontaneous
  Country: US (occurrence: US)
  Receive Date: 20240807
  Receipt Date: 20240904
  Transmission Date: 20241016
  Serious: Yes (Hospitalization)
  Sender: ALVOGEN
  Company Number: US-BMS-IMIDS-REMS_SI-11635342

PATIENT
  Sex: Male

DRUGS (6)
  1. LENALIDOMIDE [Suspect]
     Active Substance: LENALIDOMIDE
     Indication: Plasma cell myeloma
     Dosage: 10 MG?FREQUENCY: ONCE A DAY FOR 2 WEEKS
     Route: 048
     Dates: start: 202304, end: 2024
  2. LENALIDOMIDE [Suspect]
     Active Substance: LENALIDOMIDE
     Indication: Plasma cell myeloma
     Dosage: 10 MG?FREQUENCY: ONCE A DAY FOR 2 WEEKS?STARTED AGAIN
     Route: 048
     Dates: start: 20240727
  3. PREDNISONE [Suspect]
     Active Substance: PREDNISONE
     Indication: Pneumonia
  4. PREDNISONE [Concomitant]
     Active Substance: PREDNISONE
     Indication: Prophylaxis
     Dosage: OPHTHALMIC SOLUTION, 1 DROP 4?TIMES A DAY.
     Route: 061
     Dates: start: 20240817
  5. MOXIFLOXACIN [Concomitant]
     Active Substance: MOXIFLOXACIN
     Indication: Prophylaxis
     Dosage: OPHTHALMIC SOLUTION, 1 DROP 4?TIMES A DAY.
     Route: 061
     Dates: start: 20240817
  6. BROMFENAC [Concomitant]
     Active Substance: BROMFENAC
     Indication: Prophylaxis
     Dosage: OPHTHALMIC SOLUTION, 1 DROP 4?TIMES A DAY.
     Route: 061
     Dates: start: 20240817

REACTIONS (10)
  - Pleurisy [Unknown]
  - Visual impairment [Unknown]
  - Deafness [Unknown]
  - Chronic obstructive pulmonary disease [Unknown]
  - Respiratory failure [Unknown]
  - Illness [Unknown]
  - Ageusia [Not Recovered/Not Resolved]
  - Nausea [Not Recovered/Not Resolved]
  - Fatigue [Not Recovered/Not Resolved]
  - Off label use [Unknown]

NARRATIVE: CASE EVENT DATE: 20230401
